FAERS Safety Report 5807217-X (Version None)
Quarter: 2008Q3

REPORT INFORMATION
  Report Type: 
  Country: None (occurrence: None)
  Receive Date: 20080711
  Receipt Date: 20080704
  Transmission Date: 20090109
  Serious: Yes (Hospitalization)
  Sender: FDA-Public Use
  Company Number: B0528120A

PATIENT
  Age: 94 Year
  Sex: Female

DRUGS (5)
  1. CLAMOXYL [Suspect]
     Indication: ESCHERICHIA URINARY TRACT INFECTION
     Dosage: 1G THREE TIMES PER DAY
     Route: 048
     Dates: start: 20080610, end: 20080618
  2. COUMADIN [Suspect]
     Dosage: 2TAB PER DAY
     Route: 048
     Dates: start: 20080609, end: 20080615
  3. CALCIPARINE [Suspect]
     Indication: DRUG USE FOR UNKNOWN INDICATION
     Dosage: .4ML TWICE PER DAY
     Route: 058
     Dates: start: 20080605
  4. KARDEGIC [Suspect]
     Indication: DRUG USE FOR UNKNOWN INDICATION
     Route: 048
     Dates: end: 20080614
  5. CORDARONE [Suspect]
     Dosage: 1TAB PER DAY
     Route: 048
     Dates: start: 20080609

REACTIONS (3)
  - ARTHRALGIA [None]
  - DRUG INTERACTION [None]
  - HAEMATOMA [None]
